FAERS Safety Report 5852565-0 (Version None)
Quarter: 2008Q3

REPORT INFORMATION
  Report Type: 
  Country: None (occurrence: None)
  Receive Date: 20080819
  Receipt Date: 20080813
  Transmission Date: 20090109
  Serious: Yes (Hospitalization)
  Sender: FDA-Public Use
  Company Number: 199678

PATIENT
  Age: 44 Year
  Sex: Female

DRUGS (7)
  1. AVONEX [Suspect]
     Indication: MULTIPLE SCLEROSIS
     Dosage: 30 UG; QW; IM
     Route: 030
     Dates: start: 20011005, end: 20030901
  2. AVONEX [Suspect]
     Indication: MULTIPLE SCLEROSIS
     Dosage: 30 UG; QW; IM
     Route: 030
     Dates: start: 20040625
  3. LEXAPRO [Concomitant]
  4. CELEBREX [Concomitant]
  5. AMBIEN [Concomitant]
  6. MULTI-VITAMIN [Concomitant]
  7. VITAMIN E [Concomitant]

REACTIONS (2)
  - BREAST CANCER FEMALE [None]
  - WEIGHT INCREASED [None]
